FAERS Safety Report 18993923 (Version 1)
Quarter: 2021Q1

REPORT INFORMATION
  Report Type: Other
  Country: CA (occurrence: CA)
  Receive Date: 20210311
  Receipt Date: 20210311
  Transmission Date: 20210420
  Serious: Yes (Death)
  Sender: FDA-Public Use
  Company Number: CA-CELLTRION INC.-2021CA002839

PATIENT

DRUGS (10)
  1. ASPIRIN [ACETYLSALICYLIC ACID] [Concomitant]
     Active Substance: ASPIRIN
  2. SENOKOT [Concomitant]
     Active Substance: SENNOSIDES
  3. RITUXIMAB (UNKNOWN) [Suspect]
     Active Substance: RITUXIMAB
     Indication: MICROSCOPIC POLYANGIITIS
     Dosage: UNK
     Route: 042
  4. CALCIUM [Concomitant]
     Active Substance: CALCIUM
  5. BETA?CAROTENE/CUPRIC OXIDE/D?ALPHA TOCOPHERYL ACETATE/VITAMIN C/ZINC O [Concomitant]
  6. PANTOPRAZOLE [Concomitant]
     Active Substance: PANTOPRAZOLE
  7. VENLAFAXINE [Concomitant]
     Active Substance: VENLAFAXINE HYDROCHLORIDE
  8. BISACODYL. [Concomitant]
     Active Substance: BISACODYL
  9. MAGNESIUM [Concomitant]
     Active Substance: MAGNESIUM
  10. PREDNISONE. [Concomitant]
     Active Substance: PREDNISONE

REACTIONS (1)
  - Drug ineffective [Fatal]
